FAERS Safety Report 18491539 (Version 2)
Quarter: 2024Q2

REPORT INFORMATION
  Report Type: Report from Study
  Country: US (occurrence: US)
  Receive Date: 20201111
  Receipt Date: 20240506
  Transmission Date: 20240716
  Serious: No
  Sender: FDA-Public Use
  Company Number: US-DSJP-DSU-2020-133030

PATIENT
  Age: 62 Year
  Sex: Female
  Weight: 64.8 kg

DRUGS (3)
  1. ENHERTU [Suspect]
     Active Substance: FAM-TRASTUZUMAB DERUXTECAN-NXKI
     Indication: Breast cancer female
     Dosage: 420 MG, ONCE EVERY 3 WK
     Route: 042
     Dates: start: 20200807
  2. ENHERTU [Suspect]
     Active Substance: FAM-TRASTUZUMAB DERUXTECAN-NXKI
     Indication: Breast cancer female
     Dosage: 100 MG, ONCE EVERY 3 WK
     Route: 048
     Dates: start: 20210615, end: 20210716
  3. ENHERTU [Suspect]
     Active Substance: FAM-TRASTUZUMAB DERUXTECAN-NXKI
     Dosage: EVERY FOUR WEEKS
     Route: 042
     Dates: start: 20230614

REACTIONS (6)
  - Salivary hypersecretion [Unknown]
  - Laboratory test abnormal [Unknown]
  - Nausea [Unknown]
  - Vomiting [Unknown]
  - Prescribed overdose [Unknown]
  - Inappropriate schedule of product administration [Not Recovered/Not Resolved]

NARRATIVE: CASE EVENT DATE: 20200920
